FAERS Safety Report 6560646-1 (Version None)
Quarter: 2010Q1

REPORT INFORMATION
  Report Type: 
  Country: None (occurrence: None)
  Receive Date: 20100129
  Receipt Date: 20050324
  Transmission Date: 20100710
  Serious: No
  Sender: FDA-Public Use
  Company Number: US-ALLERGAN-200502383

PATIENT
  Age: 62 Year
  Sex: Female

DRUGS (10)
  1. BOTOX [Suspect]
     Indication: BLEPHAROSPASM
     Dosage: 375UNITS, PRN
     Route: 030
  2. BOTOX [Suspect]
     Indication: TORTICOLLIS
  3. ATENOLOL [Concomitant]
     Indication: HYPERTENSION
     Route: 048
  4. COZAAR [Concomitant]
     Indication: HYPERTENSION
  5. ZOCOR [Concomitant]
     Indication: HYPERLIPIDAEMIA
     Route: 048
  6. SINEMET [Concomitant]
     Indication: PARKINSON'S DISEASE
     Route: 048
  7. LEVOTHROID [Concomitant]
     Indication: HYPOTHYROIDISM
     Route: 048
  8. ZOLOFT [Concomitant]
     Indication: DEPRESSION
     Route: 048
  9. CLONAZEPAM [Concomitant]
     Indication: PARKINSON'S DISEASE
     Route: 048
  10. MAXZIDE [Concomitant]
     Indication: HYPERTENSION
     Route: 048

REACTIONS (5)
  - EYE PAIN [None]
  - EYE SWELLING [None]
  - HEADACHE [None]
  - PHOTOPHOBIA [None]
  - VISION BLURRED [None]
